FAERS Safety Report 6693821-6 (Version None)
Quarter: 2010Q2

REPORT INFORMATION
  Report Type: 
  Country: None (occurrence: None)
  Receive Date: 20100421
  Receipt Date: 20100408
  Transmission Date: 20101027
  Serious: Yes (Hospitalization)
  Sender: FDA-Public Use
  Company Number: 8053101

PATIENT
  Sex: Female
  Weight: 87.5 kg

DRUGS (13)
  1. CERTOLIZUMAB PEGOL [Suspect]
     Indication: RHEUMATOID ARTHRITIS
     Dosage: (400 MG, DOSE FREQ.: ONCE MONTHLY SUBCUTANEOUS), (400 MG, DOSE FREQ. : ONCE MONTHLY SUBCUTANEOUS)
     Route: 058
     Dates: start: 20030829, end: 20040209
  2. CERTOLIZUMAB PEGOL [Suspect]
     Indication: RHEUMATOID ARTHRITIS
     Dosage: (400 MG, DOSE FREQ.: ONCE MONTHLY SUBCUTANEOUS), (400 MG, DOSE FREQ. : ONCE MONTHLY SUBCUTANEOUS)
     Route: 058
     Dates: start: 20040401
  3. LOTREL [Concomitant]
  4. FLEXERIL [Concomitant]
  5. EFFEXOR [Concomitant]
  6. MOBIC [Concomitant]
  7. DEPO-PROVERA [Concomitant]
  8. MAXZIDE [Concomitant]
  9. CYMBALTA [Concomitant]
  10. FOLIC ACID [Concomitant]
  11. MULTI-VITAMIN [Concomitant]
  12. CLONIDINE [Concomitant]
  13. TOPROL-XL [Concomitant]

REACTIONS (5)
  - CARDIAC MURMUR [None]
  - HYPERTENSION [None]
  - PNEUMONIA [None]
  - PULMONARY HYPERTENSION [None]
  - RENAL FAILURE ACUTE [None]
